FAERS Safety Report 23035653 (Version 1)
Quarter: 2023Q4

REPORT INFORMATION
  Report Type: Spontaneous
  Country: US (occurrence: None)
  Receive Date: 20231006
  Receipt Date: 20231006
  Transmission Date: 20240110
  Serious: Yes (Hospitalization, Other)
  Sender: FDA-Public Use
  Company Number: US-MICRO LABS LIMITED-ML2023-05653

PATIENT
  Age: 76 Year
  Sex: Male

DRUGS (1)
  1. APIXABAN [Suspect]
     Active Substance: APIXABAN
     Indication: Atrial fibrillation

REACTIONS (4)
  - Shock haemorrhagic [Recovered/Resolved]
  - Post procedural haemorrhage [Recovered/Resolved]
  - Blood loss anaemia [Recovered/Resolved]
  - Haematochezia [Recovered/Resolved]
